FAERS Safety Report 5708331-X (Version None)
Quarter: 2008Q2

REPORT INFORMATION
  Report Type: 
  Country: None (occurrence: None)
  Receive Date: 20080417
  Receipt Date: 20080409
  Transmission Date: 20081010
  Serious: Yes (Other)
  Sender: FDA-Public Use
  Company Number: CH-KINGPHARMUSA00001-K200800408

PATIENT

DRUGS (1)
  1. EPIPEN [Suspect]
     Dosage: .3 MG, SINGLE
     Dates: start: 20071224, end: 20071224

REACTIONS (3)
  - ACCIDENTAL EXPOSURE [None]
  - ACCIDENTAL NEEDLE STICK [None]
  - INJECTION SITE REACTION [None]
